FAERS Safety Report 4349322-3 (Version None)
Quarter: 2004Q2

REPORT INFORMATION
  Report Type: 
  Country: None (occurrence: None)
  Receive Date: 20040426
  Receipt Date: 20040415
  Transmission Date: 20050107
  Serious: Yes (Death)
  Sender: FDA-Public Use
  Company Number: 2002107548US

PATIENT
  Age: 68 Year
  Sex: Male
  Weight: 86.2 kg

DRUGS (5)
  1. CELEBREX [Suspect]
     Indication: ARTHRITIS
     Dosage: 200 MG, BID
     Dates: start: 20000427
  2. PAXIL [Concomitant]
  3. CELESTONE [Concomitant]
  4. MARCAINE [Concomitant]
  5. LICODAINE [Concomitant]

REACTIONS (8)
  - ACUTE MYOCARDIAL INFARCTION [None]
  - ARTHRALGIA [None]
  - BACK PAIN [None]
  - CARDIAC ARREST [None]
  - COLD SWEAT [None]
  - COMA [None]
  - DYSPNOEA [None]
  - INSOMNIA [None]
